FAERS Safety Report 10305919 (Version 1)
Quarter: 2014Q3

REPORT INFORMATION
  Report Type: Spontaneous
  Country: US (occurrence: US)
  Receive Date: 20140715
  Receipt Date: 20140715
  Transmission Date: 20150326
  Serious: No
  Sender: FDA-Public Use
  Company Number: US-BAYER-2014-101311

PATIENT
  Age: 53 Year
  Sex: Male
  Weight: 82 kg

DRUGS (2)
  1. ALEVE [Suspect]
     Active Substance: NAPROXEN SODIUM
     Dosage: 3 DF, ONCE
     Route: 048
     Dates: start: 20140702, end: 20140702
  2. NIACIN. [Concomitant]
     Active Substance: NIACIN

REACTIONS (4)
  - Gingival pruritus [Recovered/Resolved]
  - Rash macular [Recovered/Resolved]
  - Pruritus generalised [Recovered/Resolved]
  - Accidental exposure to product [None]

NARRATIVE: CASE EVENT DATE: 20140702
